FAERS Safety Report 5331143-6 (Version None)
Quarter: 2007Q2

REPORT INFORMATION
  Report Type: 
  Country: None (occurrence: None)
  Receive Date: 20070517
  Receipt Date: 20070517
  Transmission Date: 20071010
  Serious: Yes (Life-Threatening, Hospitalization)
  Sender: FDA-Public Use
  Company Number: None

PATIENT
  Sex: Male

DRUGS (1)
  1. LISTERINE COOL BLUE AGENT (CHILDREN'S MOUTH WASH) [Suspect]
     Indication: DENTAL CARE
     Dosage: 2X/DAY ORAL
     Route: 048
     Dates: start: 20060901, end: 20070417

REACTIONS (10)
  - ABDOMINAL PAIN [None]
  - ABSCESS [None]
  - DIARRHOEA [None]
  - NAUSEA [None]
  - OSTEOMYELITIS [None]
  - PHARMACEUTICAL PRODUCT COMPLAINT [None]
  - PYREXIA [None]
  - STAPHYLOCOCCAL INFECTION [None]
  - TOOTH LOSS [None]
  - VOMITING [None]
